FAERS Safety Report 18564578 (Version 1)
Quarter: 2020Q4

REPORT INFORMATION
  Report Type: Report from Study
  Country: CO (occurrence: CO)
  Receive Date: 20201201
  Receipt Date: 20201201
  Transmission Date: 20210114
  Serious: Yes (Hospitalization, Other)
  Sender: FDA-Public Use
  Company Number: CO-BRISTOL-MYERS SQUIBB COMPANY-BMS-2020-074145

PATIENT
  Age: 56 Year
  Sex: Female

DRUGS (2)
  1. NIVOLUMAB [Suspect]
     Active Substance: NIVOLUMAB
     Indication: MALIGNANT MELANOMA
     Dosage: 82 MILLIGRAM, Q3WK
     Route: 042
     Dates: start: 20200812
  2. YERVOY [Suspect]
     Active Substance: IPILIMUMAB
     Indication: MALIGNANT MELANOMA
     Dosage: 246 MILLIGRAM, Q3WK
     Route: 042
     Dates: start: 20200812

REACTIONS (6)
  - Lymphadenopathy [Recovering/Resolving]
  - Wound [Unknown]
  - Dysphagia [Recovering/Resolving]
  - Oedema peripheral [Recovering/Resolving]
  - Melanocytic naevus [Recovering/Resolving]
  - Intentional product use issue [Unknown]

NARRATIVE: CASE EVENT DATE: 20200907
